FAERS Safety Report 5951520-X (Version None)
Quarter: 2008Q4

REPORT INFORMATION
  Report Type: 
  Country: None (occurrence: None)
  Receive Date: 20081113
  Receipt Date: 20081104
  Transmission Date: 20090506
  Serious: Yes (Life-Threatening, Hospitalization, Disabling, Other)
  Sender: FDA-Public Use
  Company Number: GB-AVENTIS-200812174EU

PATIENT
  Age: 74 Year
  Sex: Male

DRUGS (12)
  1. CLEXANE [Suspect]
     Indication: ACUTE CORONARY SYNDROME
     Route: 058
     Dates: start: 20080412, end: 20080413
  2. ASPIRIN [Suspect]
     Indication: ACUTE CORONARY SYNDROME
     Dates: start: 20000101, end: 20080413
  3. ASPIRIN [Suspect]
     Indication: PROPHYLAXIS
     Dates: start: 20000101, end: 20080413
  4. AVANDAMET [Suspect]
     Indication: DRUG USE FOR UNKNOWN INDICATION
     Dosage: DOSE: 1 DF
     Dates: start: 20041001, end: 20080412
  5. CLOPIDOGREL HYDROGEN SULPHATE [Suspect]
     Indication: ACUTE CORONARY SYNDROME
     Dates: start: 20080412, end: 20080413
  6. ETORICOXIB [Suspect]
     Dates: start: 20080407, end: 20080412
  7. AMLODIPINE [Concomitant]
     Dates: start: 20020101, end: 20080418
  8. BENDROFLUAZIDE [Concomitant]
     Dates: start: 20000101, end: 20080412
  9. CANDESARTAN CILEXETIL [Concomitant]
     Dates: start: 20000101, end: 20080412
  10. FERROUS SULFATE TAB [Concomitant]
     Route: 048
  11. FUROSEMIDE [Concomitant]
     Indication: FLUID RETENTION
     Dates: start: 20080401
  12. ALBUTEROL SULFATE [Concomitant]
     Route: 055

REACTIONS (12)
  - ATRIAL FIBRILLATION [None]
  - CARDIAC FAILURE CONGESTIVE [None]
  - CHEST PAIN [None]
  - DYSPNOEA [None]
  - FATIGUE [None]
  - FLUID RETENTION [None]
  - GASTROINTESTINAL HAEMORRHAGE [None]
  - HAEMATEMESIS [None]
  - OEDEMA PERIPHERAL [None]
  - PERICARDITIS [None]
  - PLEURAL EFFUSION [None]
  - RENAL FAILURE ACUTE [None]
